FAERS Safety Report 7241223-6 (Version None)
Quarter: 2011Q1

REPORT INFORMATION
  Report Type: 
  Country: None (occurrence: None)
  Receive Date: 20110124
  Receipt Date: 20110114
  Transmission Date: 20110831
  Serious: Yes (Hospitalization)
  Sender: FDA-Public Use
  Company Number: A0776649A

PATIENT
  Age: 58 Year
  Sex: Male
  Weight: 140.5 kg

DRUGS (7)
  1. GLYBURIDE [Concomitant]
  2. HYDROCHLOROTHIAZIDE [Concomitant]
  3. AVANDIA [Suspect]
     Dosage: 8MG TWICE PER DAY
     Route: 048
     Dates: start: 20031001, end: 20041201
  4. ZOLOFT [Concomitant]
  5. METFORMIN [Concomitant]
  6. LISINOPRIL [Concomitant]
  7. GEMFIBROZIL [Concomitant]

REACTIONS (4)
  - MYOCARDIAL ISCHAEMIA [None]
  - MYOCARDIAL INFARCTION [None]
  - CORONARY ARTERY DISEASE [None]
  - CARDIAC FAILURE CONGESTIVE [None]
